FAERS Safety Report 13990903 (Version 1)
Quarter: 2017Q3

REPORT INFORMATION
  Report Type: Spontaneous
  Country: US (occurrence: US)
  Receive Date: 20170920
  Receipt Date: 20170920
  Transmission Date: 20171128
  Serious: Yes (Life-Threatening)
  Sender: FDA-Public Use
  Company Number: None

PATIENT
  Age: 51 Year
  Sex: Male
  Weight: 141 kg

DRUGS (1)
  1. CEFEPIME [Suspect]
     Active Substance: CEFEPIME HYDROCHLORIDE
     Indication: CELLULITIS
     Route: 042
     Dates: start: 20170726, end: 20170726

REACTIONS (5)
  - Erythema [None]
  - Pruritus [None]
  - Hyperhidrosis [None]
  - Angioedema [None]
  - Eye disorder [None]

NARRATIVE: CASE EVENT DATE: 20170726
